FAERS Safety Report 4831471-4 (Version None)
Quarter: 2005Q4

REPORT INFORMATION
  Report Type: 
  Country: None (occurrence: None)
  Receive Date: 20051116
  Receipt Date: 20051031
  Transmission Date: 20060501
  Serious: No
  Sender: FDA-Public Use
  Company Number: 05111631

PATIENT
  Age: 3 Year

DRUGS (1)
  1. OVIDE [Suspect]
     Indication: LICE INFESTATION
     Dosage: ONCE, TOPICAL
     Route: 061
     Dates: start: 20050815, end: 20050816

REACTIONS (5)
  - APPLICATION SITE ERYTHEMA [None]
  - APPLICATION SITE IRRITATION [None]
  - APPLICATION SITE VESICLES [None]
  - CAUSTIC INJURY [None]
  - CONJUNCTIVITIS [None]
